FAERS Safety Report 7994132-9 (Version None)
Quarter: 2011Q4

REPORT INFORMATION
  Report Type: 
  Country: None (occurrence: None)
  Receive Date: 20111220
  Receipt Date: 20111212
  Transmission Date: 20120403
  Serious: Yes (Hospitalization, Other)
  Sender: FDA-Public Use
  Company Number: US-US-EMD SERONO, INC.-231947J10USA

PATIENT
  Sex: Female

DRUGS (7)
  1. REBIF [Suspect]
     Indication: MULTIPLE SCLEROSIS
     Route: 058
     Dates: start: 20030106, end: 20100405
  2. CARDURA [Concomitant]
     Indication: HYPERTENSION
     Dates: start: 20060101
  3. SYNTHROID [Concomitant]
     Indication: THYROID NEOPLASM
  4. ZOCOR [Concomitant]
     Indication: BLOOD CHOLESTEROL INCREASED
  5. REBIF [Suspect]
     Route: 058
  6. ACTONEL [Concomitant]
     Indication: OSTEOPOROSIS
  7. LOPRESSOR [Concomitant]
     Indication: HYPERTENSION
     Dates: start: 20060101

REACTIONS (7)
  - DIVERTICULITIS [None]
  - COLONIC POLYP [None]
  - INCISIONAL HERNIA [None]
  - DIVERTICULUM [None]
  - COLONIC OBSTRUCTION [None]
  - LARGE INTESTINE PERFORATION [None]
  - DIVERTICULAR PERFORATION [None]
